FAERS Safety Report 9504449 (Version 1)
Quarter: 2013Q3

REPORT INFORMATION
  Report Type: Spontaneous
  Country: IT (occurrence: IT)
  Receive Date: 20130906
  Receipt Date: 20130906
  Transmission Date: 20140515
  Serious: Yes (Other)
  Sender: FDA-Public Use
  Company Number: IT-TEVA-428928ISR

PATIENT
  Age: 69 Year
  Sex: Male

DRUGS (4)
  1. METFORMINA [Suspect]
     Indication: DIABETES MELLITUS
  2. SITAGLIPTIN [Concomitant]
  3. DUOPLAVIN [Concomitant]
  4. FUROSEMIDE [Concomitant]

REACTIONS (1)
  - Nephrolithiasis [Not Recovered/Not Resolved]
